FAERS Safety Report 9411518 (Version 1)
Quarter: 2013Q3

REPORT INFORMATION
  Report Type: Not Available
  Country: GB (occurrence: GB)
  Receive Date: 20130722
  Receipt Date: 20130722
  Transmission Date: 20140515
  Serious: Yes (Other)
  Sender: FDA-Public Use
  Company Number: GB-ASTELLAS-2013EU005934

PATIENT
  Age: 45 Year
  Sex: Female

DRUGS (5)
  1. BETMIGA [Suspect]
     Indication: URINARY INCONTINENCE
     Dosage: 50 MG, UNKNOWN/D
     Route: 048
     Dates: start: 20130610, end: 20130617
  2. CERAZETTE                          /00754001/ [Concomitant]
     Dosage: 75 MG, UID/QD
     Route: 048
  3. CITALOPRAM [Concomitant]
     Dosage: 40 MG, UNKNOWN/D
     Route: 048
  4. DIAZEPAM [Concomitant]
     Dosage: 2 MG, PRN
     Route: 048
  5. PARACETAMOL [Concomitant]
     Dosage: 500 G, UNKNOWN/D
     Route: 048

REACTIONS (10)
  - Chest pain [Recovered/Resolved]
  - Confusional state [Recovered/Resolved]
  - Dizziness [Recovered/Resolved]
  - Dyspnoea [Recovered/Resolved]
  - Hiccups [Recovered/Resolved]
  - Palpitations [Recovered/Resolved]
  - Swollen tongue [Recovered/Resolved]
  - Tachycardia [Recovered/Resolved]
  - Fatigue [Recovered/Resolved]
  - Flatulence [Recovered/Resolved]
